APPROVED DRUG PRODUCT: BRYNOVIN
Active Ingredient: SITAGLIPTIN HYDROCHLORIDE
Strength: EQ 25MG BASE/ML
Dosage Form/Route: SOLUTION;ORAL
Application: N219122 | Product #001
Applicant: AZURITY PHARMACEUTICALS INC
Approved: Jan 16, 2025 | RLD: Yes | RS: Yes | Type: RX

PATENTS:
Patent 12295953 | Expires: Oct 23, 2040
Patent 11944621 | Expires: Oct 23, 2040